FAERS Safety Report 5835601-7 (Version None)
Quarter: 2008Q3

REPORT INFORMATION
  Report Type: 
  Country: None (occurrence: None)
  Receive Date: 20080728
  Receipt Date: 20080717
  Transmission Date: 20090109
  Serious: No
  Sender: FDA-Public Use
  Company Number: 2008US001571

PATIENT
  Age: 75 Year
  Sex: Female

DRUGS (1)
  1. CONIVAPTAN         (CONIVAPTAN) [Suspect]
     Indication: DRUG USE FOR UNKNOWN INDICATION
     Dosage: 20 MG, TOTAL DOSE, IV NOS
     Route: 058
     Dates: start: 20080611

REACTIONS (4)
  - EXTRAVASATION [None]
  - INCORRECT ROUTE OF DRUG ADMINISTRATION [None]
  - PAIN [None]
  - SKIN DISCOLOURATION [None]
